FAERS Safety Report 8045996-4 (Version None)
Quarter: 2012Q1

REPORT INFORMATION
  Report Type: 
  Country: None (occurrence: None)
  Receive Date: 20120113
  Receipt Date: 20120110
  Transmission Date: 20120608
  Serious: Yes (Death)
  Sender: FDA-Public Use
  Company Number: US-PFIZER INC-2011303032

PATIENT
  Sex: Female

DRUGS (5)
  1. CONCERTA [Concomitant]
     Indication: ATTENTION DEFICIT/HYPERACTIVITY DISORDER
     Dosage: 54 MG, DAILY
     Dates: start: 20070725
  2. WELLBUTRIN [Concomitant]
     Indication: DEPRESSION
     Dosage: 300 MG, DAILY
     Dates: start: 20100506
  3. LATUDA [Concomitant]
     Indication: HALLUCINATION, VISUAL
  4. LATUDA [Concomitant]
     Indication: HALLUCINATION, AUDITORY
     Dosage: 80 MG, HS
     Dates: start: 20110829, end: 20110928
  5. GEODON [Suspect]
     Dosage: 40 MG, 2X/DAY
     Route: 048
     Dates: start: 20110928

REACTIONS (3)
  - SOMNOLENCE [None]
  - DEATH [None]
  - FEELING ABNORMAL [None]
